FAERS Safety Report 7128753 (Version 4)
Quarter: 2014Q2

REPORT INFORMATION
  Report Type: Spontaneous
  Country: US (occurrence: US)
  Receive Date: 20090924
  Receipt Date: 20140514
  Transmission Date: 20141212
  Serious: No
  Sender: FDA-Public Use
  Company Number: US-ASTRAZENECA-2009UW18786

PATIENT
  Age: 66 Year
  Sex: Female

DRUGS (1)
  1. SEROQUEL [Suspect]
     Route: 048

REACTIONS (6)
  - Malaise [Unknown]
  - Dizziness [Unknown]
  - Dry mouth [Unknown]
  - Dyspepsia [Unknown]
  - Intentional product misuse [Unknown]
  - Drug dose omission [Unknown]
